FAERS Safety Report 8577321-4 (Version None)
Quarter: 2012Q3

REPORT INFORMATION
  Report Type: 
  Country: None (occurrence: None)
  Receive Date: 20120725
  Receipt Date: 20120716
  Transmission Date: 20120928
  Serious: Yes (Other)
  Sender: FDA-Public Use
  Company Number: GB-GDP-12414401

PATIENT
  Age: 35 Year
  Sex: Female
  Weight: 65 kg

DRUGS (5)
  1. TRAMADOL HYDROCHLORIDE [Concomitant]
  2. DOXYCYCLINE [Suspect]
     Indication: PRODUCT USED FOR UNKNOWN INDICATION
     Dates: start: 20120629
  3. ZAPAIN [Concomitant]
  4. ERYTHROMYCIN ETHYLSUCCINATE [Concomitant]
  5. DEPO-PROVERA [Concomitant]

REACTIONS (1)
  - VOMITING [None]
